FAERS Safety Report 10520554 (Version 2)
Quarter: 2014Q4

REPORT INFORMATION
  Report Type: Spontaneous
  Country: ZA (occurrence: ZA)
  Receive Date: 20141015
  Receipt Date: 20141024
  Transmission Date: 20150528
  Serious: Yes (Hospitalization)
  Sender: FDA-Public Use
  Company Number: ZA-PFIZER INC-2014278283

PATIENT
  Age: 81 Year
  Sex: Male

DRUGS (9)
  1. CARZIN [Concomitant]
     Dosage: UNK
  2. FORVENT REFILL [Concomitant]
     Dosage: UNK
  3. PRITORPLUS [Concomitant]
     Active Substance: HYDROCHLOROTHIAZIDE\TELMISARTAN
     Dosage: UNK
  4. FELODIPINHEXAL [Concomitant]
     Dosage: UNK
  5. SOTAHEXAL [Concomitant]
     Active Substance: SOTALOL
     Dosage: UNK
  6. BILOCOR [Concomitant]
     Active Substance: BISOPROLOL FUMARATE
     Indication: BLOOD PRESSURE
     Dosage: UNK
     Route: 048
  7. ASPAVOR [Suspect]
     Active Substance: ATORVASTATIN
     Indication: BLOOD CHOLESTEROL
     Dosage: UNK
  8. ECOTRIN [Concomitant]
     Active Substance: ASPIRIN
     Indication: BLOOD DISORDER
     Dosage: UNK
     Route: 048
  9. ASTHAVENT [Concomitant]
     Dosage: UNK

REACTIONS (1)
  - Dyspnoea [Unknown]

NARRATIVE: CASE EVENT DATE: 20141006
